FAERS Safety Report 14229944 (Version 1)
Quarter: 2017Q4

REPORT INFORMATION
  Report Type: Spontaneous
  Country: US (occurrence: None)
  Receive Date: 20171127
  Receipt Date: 20171127
  Transmission Date: 20180321
  Serious: No
  Sender: FDA-Public Use
  Company Number: None

PATIENT
  Age: 62 Year
  Sex: Male

DRUGS (1)
  1. STIVARGA [Suspect]
     Active Substance: REGORAFENIB
     Indication: HEPATIC CANCER
     Dosage: 80MG DAILY FOR 21 DAYS ON, 7 DAYS OFF ORAL
     Route: 048
     Dates: start: 20170620, end: 20171125

REACTIONS (2)
  - Hepatic cancer [None]
  - Condition aggravated [None]
